FAERS Safety Report 26118424 (Version 1)
Quarter: 2025Q4

REPORT INFORMATION
  Report Type: Spontaneous
  Country: EU (occurrence: EU)
  Receive Date: 20251203
  Receipt Date: 20251203
  Transmission Date: 20260117
  Serious: Yes (Other)
  Sender: GILEAD
  Company Number: EU-GILEAD-2025-0738714

PATIENT
  Sex: Female

DRUGS (1)
  1. VIREAD [Suspect]
     Active Substance: TENOFOVIR DISOPROXIL FUMARATE
     Indication: Hepatitis B
     Dosage: UNK
     Route: 065

REACTIONS (4)
  - Parathyroidectomy [Unknown]
  - Hypophosphataemia [Unknown]
  - Dysphonia [Unknown]
  - Headache [Recovered/Resolved]
